FAERS Safety Report 7162553-2 (Version None)
Quarter: 2010Q4

REPORT INFORMATION
  Report Type: 
  Country: None (occurrence: None)
  Receive Date: 20101201
  Receipt Date: 20101122
  Transmission Date: 20110411
  Serious: Yes (Death)
  Sender: FDA-Public Use
  Company Number: DSA_44423_2010

PATIENT
  Sex: Female
  Weight: 52.6173 kg

DRUGS (5)
  1. XENAZINE [Suspect]
     Indication: HUNTINGTON'S DISEASE
     Dosage: (12.5 MG BID ORAL)
     Route: 048
     Dates: start: 20101104
  2. CONJUGATED ESTROGEN [Concomitant]
  3. ENABLEX [Concomitant]
  4. CALCIUM [Concomitant]
  5. PAROXETINE HCL [Concomitant]

REACTIONS (1)
  - PULMONARY EMBOLISM [None]
